FAERS Safety Report 7305550-6 (Version None)
Quarter: 2011Q1

REPORT INFORMATION
  Report Type: 
  Country: None (occurrence: None)
  Receive Date: 20110222
  Receipt Date: 20110214
  Transmission Date: 20110831
  Serious: Yes (Hospitalization)
  Sender: FDA-Public Use
  Company Number: FR-JNJFOC-20110204341

PATIENT
  Sex: Male

DRUGS (11)
  1. RISPERDAL [Suspect]
     Indication: PRODUCT USED FOR UNKNOWN INDICATION
     Route: 048
  2. DIPIPERON [Suspect]
     Indication: PRODUCT USED FOR UNKNOWN INDICATION
     Route: 048
  3. SERESTA [Suspect]
     Indication: PRODUCT USED FOR UNKNOWN INDICATION
     Route: 048
  4. ANDROCUR [Concomitant]
     Indication: PROSTATE CANCER
     Route: 048
  5. NEXIUM [Concomitant]
     Route: 048
  6. TRANXENE [Suspect]
     Indication: AGITATION
     Route: 030
  7. LOVENOX [Concomitant]
     Route: 058
  8. VASTAREL [Concomitant]
     Route: 048
  9. OROKEN [Concomitant]
     Indication: URINARY TRACT INFECTION
     Route: 048
  10. MONUROL [Concomitant]
     Indication: URINARY TRACT INFECTION
     Route: 048
  11. ZOLOFT [Suspect]
     Indication: PRODUCT USED FOR UNKNOWN INDICATION
     Route: 048

REACTIONS (5)
  - RHABDOMYOLYSIS [None]
  - EXTRAPYRAMIDAL DISORDER [None]
  - DISTURBANCE IN ATTENTION [None]
  - RESPIRATORY DISTRESS [None]
  - TACHYCARDIA [None]
